FAERS Safety Report 11285858 (Version 2)
Quarter: 2015Q3

REPORT INFORMATION
  Report Type: Spontaneous
  Country: AR (occurrence: AR)
  Receive Date: 20150721
  Receipt Date: 20150806
  Transmission Date: 20151125
  Serious: Yes (Other)
  Sender: FDA-Public Use
  Company Number: AR-AMGEN-ARGSP2015072117

PATIENT
  Age: 74 Year
  Sex: Male

DRUGS (6)
  1. ACIDO FOLICO                       /00024201/ [Concomitant]
     Dosage: UNK
     Dates: start: 2009
  2. NEBIVOLOL. [Concomitant]
     Active Substance: NEBIVOLOL
     Dosage: UNK
     Dates: start: 2014
  3. ENBREL [Suspect]
     Active Substance: ETANERCEPT
     Indication: RHEUMATOID ARTHRITIS
     Dosage: 50 MG, WEEKLY
     Route: 065
     Dates: start: 20090406, end: 201407
  4. EXFORGE [Concomitant]
     Active Substance: AMLODIPINE BESYLATE\VALSARTAN
     Dosage: UNK
     Dates: start: 2014
  5. NORMORYTMIN [Concomitant]
     Dosage: UNK
     Dates: start: 2014
  6. ARTRAIT                            /00113801/ [Concomitant]
     Active Substance: METHOTREXATE SODIUM
     Dosage: UNK
     Dates: start: 2009

REACTIONS (4)
  - Disease progression [Not Recovered/Not Resolved]
  - General physical health deterioration [Not Recovered/Not Resolved]
  - Drug ineffective [Not Recovered/Not Resolved]
  - Rheumatoid arthritis [Not Recovered/Not Resolved]

NARRATIVE: CASE EVENT DATE: 201411
